FAERS Safety Report 8227630-3 (Version None)
Quarter: 2012Q1

REPORT INFORMATION
  Report Type: 
  Country: None (occurrence: None)
  Receive Date: 20120322
  Receipt Date: 20120309
  Transmission Date: 20120608
  Serious: No
  Sender: FDA-Public Use
  Company Number: US-ENDO PHARMACEUTICALS INC.-OPER20120329

PATIENT
  Sex: Male

DRUGS (5)
  1. PERCOCET [Concomitant]
     Indication: BACK PAIN
  2. OPANA ER [Suspect]
     Indication: BACK PAIN
     Route: 048
     Dates: end: 20120302
  3. PERCOCET [Concomitant]
     Indication: NECK PAIN
     Dosage: UNK
     Route: 048
     Dates: end: 20120302
  4. OPANA ER [Suspect]
     Indication: NECK PAIN
     Dosage: UNK
     Route: 048
     Dates: start: 20120303
  5. DILAUDID [Suspect]
     Indication: BREAKTHROUGH PAIN
     Dosage: UNK
     Route: 048
     Dates: start: 20120303

REACTIONS (1)
  - DRUG EFFECT DECREASED [None]
